FAERS Safety Report 6503668-9 (Version None)
Quarter: 2009Q4

REPORT INFORMATION
  Report Type: 
  Country: None (occurrence: None)
  Receive Date: 20091217
  Receipt Date: 20091209
  Transmission Date: 20100525
  Serious: Yes (Other)
  Sender: FDA-Public Use
  Company Number: CA-JNJFOC-20091203268

PATIENT
  Sex: Female
  Weight: 69 kg

DRUGS (4)
  1. REMICADE [Suspect]
     Dosage: INFUSION 33-71
     Route: 042
  2. REMICADE [Suspect]
     Dosage: INFUSION 32
     Route: 042
  3. REMICADE [Suspect]
     Dosage: INFUSION 17-31
     Route: 042
  4. REMICADE [Suspect]
     Indication: RHEUMATOID ARTHRITIS
     Dosage: INFUSION 1-16
     Route: 042

REACTIONS (4)
  - DEPRESSION [None]
  - LEUKOENCEPHALOPATHY [None]
  - MOOD SWINGS [None]
  - PYREXIA [None]
